FAERS Safety Report 6614645-1 (Version None)
Quarter: 2010Q1

REPORT INFORMATION
  Report Type: 
  Country: None (occurrence: None)
  Receive Date: 20100226
  Receipt Date: 20100216
  Transmission Date: 20100710
  Serious: Yes (Death)
  Sender: FDA-Public Use
  Company Number: 2010020035

PATIENT
  Age: 70 Year
  Sex: Male

DRUGS (2)
  1. ONSOLIS [Suspect]
     Indication: CANCER PAIN
     Dosage: TO BE TITRATED (UP TO 4 DOSES DAILY), BU
     Route: 002
     Dates: start: 20091216
  2. FENTANYL-100 [Concomitant]
     Dosage: 75MCG, 1 IN 3 D
     Route: 062

REACTIONS (2)
  - MALIGNANT NEOPLASM PROGRESSION [None]
  - PANCREATIC CARCINOMA [None]
